FAERS Safety Report 9298220 (Version 1)
Quarter: 2012Q4

REPORT INFORMATION
  Report Type: Spontaneous
  Country: JP (occurrence: None)
  Receive Date: 20121009
  Receipt Date: 20121009
  Transmission Date: 20130627
  Serious: Yes (Hospitalization, Other)
  Sender: FDA-Public Use
  Company Number: VAL_00896_2012

PATIENT
  Age: 70 Year
  Sex: Female

DRUGS (8)
  1. PARLODEL [Suspect]
     Indication: ACROMEGALY
     Route: 048
     Dates: start: 20000908, end: 20120520
  2. PARLODEL [Suspect]
     Indication: ACROMEGALY
     Route: 048
     Dates: start: 20120521
  3. CLARITH [Suspect]
     Indication: CHRONIC SINUSITIS
     Route: 048
  4. TAKEPRON [Suspect]
     Route: 048
     Dates: end: 20120330
  5. BLOPRESS [Suspect]
     Indication: HYPERTENSION
     Route: 048
  6. REBAMIPIDE [Concomitant]
  7. ERYTHROMYCIN [Concomitant]
  8. AMLODIPINE [Concomitant]

REACTIONS (4)
  - Anaemia [None]
  - Myelodysplastic syndrome [None]
  - White blood cell count decreased [None]
  - Iron deficiency [None]
